FAERS Safety Report 5645134-9 (Version None)
Quarter: 2008Q1

REPORT INFORMATION
  Report Type: 
  Country: None (occurrence: None)
  Receive Date: 20080229
  Receipt Date: 20080220
  Transmission Date: 20080703
  Serious: Yes (Death)
  Sender: FDA-Public Use
  Company Number: IN-ROCHE-548844

PATIENT
  Age: 64 Year
  Sex: Female

DRUGS (2)
  1. CAPECITABINE [Suspect]
     Dosage: 3 WEEK CYCLES CONSISTING OF 2 WEEKS WITH CAPECIATINE TREATMENT FOLLOWED BY 1 WEEK WITHOUT.
     Route: 048
     Dates: start: 20080131
  2. DOCETAXEL [Suspect]
     Dosage: DOSAGE FORM REPORTED AS INFUSION. ADMINISTERED ON DAY 1 OF EACH 3 WEEK CYCLE.
     Route: 042
     Dates: start: 20080131

REACTIONS (1)
  - DEATH [None]
